FAERS Safety Report 19187294 (Version 1)
Quarter: 2021Q2

REPORT INFORMATION
  Report Type: Spontaneous
  Country: ES (occurrence: ES)
  Receive Date: 20210427
  Receipt Date: 20210427
  Transmission Date: 20210717
  Serious: Yes (Other)
  Sender: FDA-Public Use
  Company Number: ES-SA-2021SA128785

PATIENT
  Age: 53 Year
  Sex: Male
  Weight: 75 kg

DRUGS (1)
  1. LANTUS [Suspect]
     Active Substance: INSULIN GLARGINE
     Indication: TYPE 2 DIABETES MELLITUS
     Dosage: UNK
     Route: 058

REACTIONS (8)
  - Diabetes mellitus inadequate control [Recovered/Resolved]
  - Intentional dose omission [Recovered/Resolved]
  - Depression [Recovering/Resolving]
  - Nasal neoplasm [Recovered/Resolved]
  - Impaired self-care [Recovering/Resolving]
  - Cachexia [Recovering/Resolving]
  - Blood uric acid abnormal [Unknown]
  - Weight decreased [Recovering/Resolving]

NARRATIVE: CASE EVENT DATE: 2019
